FAERS Safety Report 6046570-1 (Version None)
Quarter: 2009Q1

REPORT INFORMATION
  Report Type: 
  Country: None (occurrence: None)
  Receive Date: 20090122
  Receipt Date: 20090112
  Transmission Date: 20090719
  Serious: Yes (Other)
  Sender: FDA-Public Use
  Company Number: PHHY2008GB32150

PATIENT
  Age: 17 Year
  Sex: Male
  Weight: 51.5 kg

DRUGS (2)
  1. EXJADE [Suspect]
     Dosage: UNK
     Route: 048
     Dates: start: 20080701
  2. EXJADE [Suspect]
     Dosage: 500 MG/DAY
     Route: 048

REACTIONS (1)
  - HEADACHE [None]
